FAERS Safety Report 12940855 (Version 1)
Quarter: 2016Q4

REPORT INFORMATION
  Report Type: Spontaneous
  Country: LB (occurrence: LB)
  Receive Date: 20161115
  Receipt Date: 20161115
  Transmission Date: 20170207
  Serious: Yes (Other)
  Sender: FDA-Public Use
  Company Number: LB-ALKEM LABORATORIES LIMITED-LB-ALKEM-2016-00311

PATIENT
  Age: 74 Year
  Sex: Male

DRUGS (2)
  1. LEVOFLOXACIN. [Concomitant]
     Active Substance: LEVOFLOXACIN
     Indication: DEVICE RELATED INFECTION
     Dosage: 750 MG, OD
     Route: 048
  2. LINEZOLID. [Suspect]
     Active Substance: LINEZOLID
     Indication: DEVICE RELATED INFECTION
     Dosage: 600 MG, BID
     Route: 048

REACTIONS (6)
  - Necrosis [Recovering/Resolving]
  - Septic shock [Recovering/Resolving]
  - Pancytopenia [Recovered/Resolved]
  - Toxicity to various agents [Recovering/Resolving]
  - Acquired mitochondrial DNA mutation [Recovering/Resolving]
  - Lactic acidosis [Recovered/Resolved]
